FAERS Safety Report 13207678 (Version 1)
Quarter: 2017Q1

REPORT INFORMATION
  Report Type: Spontaneous
  Country: US (occurrence: US)
  Receive Date: 20170209
  Receipt Date: 20170209
  Transmission Date: 20170428
  Serious: No
  Sender: FDA-Public Use
  Company Number: US-PERRIGO-15US013273

PATIENT
  Age: 85 Year
  Sex: Female
  Weight: 88.44 kg

DRUGS (1)
  1. CICLOPIROX OLAMINE. [Suspect]
     Active Substance: CICLOPIROX OLAMINE
     Indication: ONYCHOMYCOSIS
     Dosage: SMALL AMOUNT, QD
     Route: 061
     Dates: start: 20151214

REACTIONS (2)
  - Application site pain [Unknown]
  - Inappropriate schedule of drug administration [Unknown]

NARRATIVE: CASE EVENT DATE: 20151214
